FAERS Safety Report 13954498 (Version 1)
Quarter: 2017Q3

REPORT INFORMATION
  Report Type: Spontaneous
  Country: US (occurrence: US)
  Receive Date: 20170910
  Receipt Date: 20170910
  Transmission Date: 20171128
  Serious: No
  Sender: FDA-Public Use
  Company Number: None

PATIENT

DRUGS (3)
  1. SALINE SPRAY/DROPS [Suspect]
     Active Substance: SODIUM CHLORIDE
     Indication: RHINORRHOEA
     Route: 045
     Dates: start: 20170620, end: 20170910
  2. SALINE SPRAY/DROPS [Suspect]
     Active Substance: SODIUM CHLORIDE
     Indication: INCREASED VISCOSITY OF UPPER RESPIRATORY SECRETION
     Route: 045
     Dates: start: 20170620, end: 20170910
  3. SALINE SPRAY/DROPS [Suspect]
     Active Substance: SODIUM CHLORIDE
     Indication: DRUG THERAPY
     Route: 045
     Dates: start: 20170620, end: 20170910

REACTIONS (1)
  - Physical product label issue [None]

NARRATIVE: CASE EVENT DATE: 20170620
